FAERS Safety Report 21068748 (Version 1)
Quarter: 2022Q3

REPORT INFORMATION
  Report Type: Spontaneous
  Country: RU (occurrence: RU)
  Receive Date: 20220712
  Receipt Date: 20220712
  Transmission Date: 20221027
  Serious: Yes (Other)
  Sender: FDA-Public Use
  Company Number: RU-VIIV HEALTHCARE LIMITED-RU2022EME103547

PATIENT

DRUGS (3)
  1. DOLUTEGRAVIR [Suspect]
     Active Substance: DOLUTEGRAVIR
     Indication: HIV infection CDC Group IV subgroup B
     Dosage: 1 DF, QD, 50 MG ONCE A DAY
     Dates: start: 20210714, end: 20220421
  2. LAMIVUDINE [Suspect]
     Active Substance: LAMIVUDINE
     Indication: HIV infection CDC Group IV subgroup B
     Dosage: UNK, 0.3
     Dates: start: 20210714, end: 20220421
  3. TENOFOVIR DISOPROXIL FUMARATE [Suspect]
     Active Substance: TENOFOVIR DISOPROXIL FUMARATE
     Indication: HIV infection CDC Group IV subgroup B
     Dosage: UNK, 0.3
     Dates: start: 20210714

REACTIONS (6)
  - Anxiety [Recovered/Resolved]
  - Depression [Recovered/Resolved]
  - Poor quality sleep [Recovered/Resolved]
  - Weight decreased [Unknown]
  - Mental disorder [Unknown]
  - Asthenia [Unknown]

NARRATIVE: CASE EVENT DATE: 20210101
